FAERS Safety Report 25890607 (Version 2)
Quarter: 2025Q4

REPORT INFORMATION
  Report Type: Spontaneous
  Country: GB (occurrence: GB)
  Receive Date: 20251007
  Receipt Date: 20251112
  Transmission Date: 20260118
  Serious: Yes (Hospitalization, Other)
  Sender: MYLAN
  Company Number: GB-MYLANLABS-2025M1084814

PATIENT
  Sex: Male

DRUGS (12)
  1. CLOZARIL [Suspect]
     Active Substance: CLOZAPINE
     Indication: Schizophrenia
     Dosage: UNK
  2. CLOZARIL [Suspect]
     Active Substance: CLOZAPINE
     Dosage: UNK
  3. CLOZARIL [Suspect]
     Active Substance: CLOZAPINE
     Dosage: UNK
     Route: 048
  4. CLOZARIL [Suspect]
     Active Substance: CLOZAPINE
     Dosage: UNK
     Route: 048
  5. CLOZARIL [Suspect]
     Active Substance: CLOZAPINE
     Dosage: UNK, BID (100 MG MORNING AND 150 MG EVENING)
  6. CLOZARIL [Suspect]
     Active Substance: CLOZAPINE
     Dosage: UNK, BID (100 MG MORNING AND 150 MG EVENING)
  7. CLOZARIL [Suspect]
     Active Substance: CLOZAPINE
     Dosage: UNK, BID (100 MG MORNING AND 150 MG EVENING)
     Route: 048
  8. CLOZARIL [Suspect]
     Active Substance: CLOZAPINE
     Dosage: UNK, BID (100 MG MORNING AND 150 MG EVENING)
     Route: 048
  9. OLANZAPINE [Concomitant]
     Active Substance: OLANZAPINE
     Dosage: UNK
  10. OLANZAPINE [Concomitant]
     Active Substance: OLANZAPINE
     Dosage: UNK
     Route: 065
  11. OLANZAPINE [Concomitant]
     Active Substance: OLANZAPINE
     Dosage: UNK
     Route: 065
  12. OLANZAPINE [Concomitant]
     Active Substance: OLANZAPINE
     Dosage: UNK

REACTIONS (3)
  - Schizophrenia [Recovered/Resolved]
  - Treatment noncompliance [Unknown]
  - Electrocardiogram QT interval abnormal [Not Recovered/Not Resolved]
